FAERS Safety Report 21735270 (Version 1)
Quarter: 2022Q4

REPORT INFORMATION
  Report Type: Report from Study
  Country: JP (occurrence: JP)
  Receive Date: 20221215
  Receipt Date: 20221215
  Transmission Date: 20230113
  Serious: Yes (Other)
  Sender: FDA-Public Use
  Company Number: JP-JNJFOC-20221224195

PATIENT

DRUGS (1)
  1. SIMPONI [Suspect]
     Active Substance: GOLIMUMAB
     Indication: Rheumatoid arthritis
     Dosage: DOSE UNKNOWN
     Route: 058

REACTIONS (8)
  - Interstitial lung disease [Unknown]
  - Drug-induced liver injury [Unknown]
  - Bacterial infection [Unknown]
  - Herpes zoster [Unknown]
  - Drug eruption [Unknown]
  - Adverse reaction [Unknown]
  - Drug ineffective [Unknown]
  - Adverse event [Unknown]
